FAERS Safety Report 21099013 (Version 2)
Quarter: 2022Q3

REPORT INFORMATION
  Report Type: Spontaneous
  Country: JP (occurrence: JP)
  Receive Date: 20220719
  Receipt Date: 20220727
  Transmission Date: 20221027
  Serious: Yes (Other)
  Sender: FDA-Public Use
  Company Number: JP-BAYER-2022A101265

PATIENT
  Age: 66 Year
  Sex: Male

DRUGS (2)
  1. IOPROMIDE [Suspect]
     Active Substance: IOPROMIDE
     Indication: Pancreatic carcinoma
     Dosage: 100ML, ONCE
     Dates: start: 20220701, end: 20220701
  2. IOPROMIDE [Suspect]
     Active Substance: IOPROMIDE
     Indication: Metastases to liver

REACTIONS (3)
  - Pruritus [Recovering/Resolving]
  - Rash [Recovering/Resolving]
  - Oropharyngeal discomfort [Recovering/Resolving]

NARRATIVE: CASE EVENT DATE: 20220701
